FAERS Safety Report 13359512 (Version 2)
Quarter: 2017Q1

REPORT INFORMATION
  Report Type: Report from Study
  Country: CZ (occurrence: CZ)
  Receive Date: 20170322
  Receipt Date: 20170324
  Transmission Date: 20170429
  Serious: Yes (Death, Other)
  Sender: FDA-Public Use
  Company Number: PHHY2017CZ043307

PATIENT
  Age: 79 Year
  Sex: Female

DRUGS (2)
  1. GLIVEC [Suspect]
     Active Substance: IMATINIB MESYLATE
     Indication: PRODUCT USED FOR UNKNOWN INDICATION
     Dosage: 400 MG, EVERY OTHER MONTH
     Route: 065
     Dates: start: 20080125
  2. ATENOLOL. [Concomitant]
     Active Substance: ATENOLOL
     Indication: PRODUCT USED FOR UNKNOWN INDICATION
     Dosage: UNK UNK, QD
     Route: 065
     Dates: start: 20091015

REACTIONS (2)
  - Chronic myeloid leukaemia (in remission) [Unknown]
  - Squamous cell carcinoma of skin [Fatal]

NARRATIVE: CASE EVENT DATE: 201310
